FAERS Safety Report 7257413-2 (Version None)
Quarter: 2011Q1

REPORT INFORMATION
  Report Type: 
  Country: None (occurrence: None)
  Receive Date: 20110129
  Receipt Date: 20100816
  Transmission Date: 20110831
  Serious: No
  Sender: FDA-Public Use
  Company Number: US-ABBOTT-10P-163-0664778-00

PATIENT
  Sex: Female
  Weight: 67.192 kg

DRUGS (6)
  1. NORVASC [Concomitant]
     Indication: HYPERTENSION
     Dosage: NOT REPORTED
  2. VITAMIN B-12 [Concomitant]
     Indication: VITAMIN B12 DECREASED
     Route: 050
  3. GLUCATROL [Concomitant]
     Indication: TYPE 2 DIABETES MELLITUS
  4. HUMIRA [Suspect]
     Indication: CROHN'S DISEASE
     Route: 058
     Dates: start: 20081128
  5. LISINOPRIL [Concomitant]
     Indication: HYPERTENSION
  6. PENTASA [Concomitant]
     Indication: CROHN'S DISEASE

REACTIONS (3)
  - MUSCULOSKELETAL PAIN [None]
  - CHEST PAIN [None]
  - ABDOMINAL DISTENSION [None]
